FAERS Safety Report 11178949 (Version 3)
Quarter: 2016Q2

REPORT INFORMATION
  Report Type: Report from Study
  Country: US (occurrence: US)
  Receive Date: 20150610
  Receipt Date: 20160404
  Transmission Date: 20160815
  Serious: Yes (Death, Hospitalization)
  Sender: FDA-Public Use
  Company Number: US-MYLANLABS-2015M1018850

PATIENT

DRUGS (8)
  1. PAMIDRONATE [Suspect]
     Active Substance: PAMIDRONATE DISODIUM
     Indication: HYPERCALCAEMIA
     Dosage: 60 MG, ONCE
     Dates: start: 20150424, end: 20150424
  2. ARIMIDEX [Concomitant]
     Active Substance: ANASTROZOLE
     Dosage: 1 MG, QD
     Route: 048
     Dates: start: 20140129
  3. CALCITONIN [Suspect]
     Active Substance: CALCITONIN
     Indication: HYPERCALCAEMIA
     Dosage: 200 IU, BID
     Dates: start: 20150424
  4. DECADRON [Concomitant]
     Active Substance: DEXAMETHASONE
     Dosage: 1 MG, BID
     Route: 048
     Dates: start: 20141230
  5. ENSURE [Concomitant]
     Active Substance: AMINO ACIDS\DEXTROSE\ELECTROLYTES NOS\SOYBEAN OIL\VITAMINS
     Dosage: UNK, TID
     Route: 048
     Dates: start: 20150313
  6. SILVADENE [Concomitant]
     Active Substance: SILVER SULFADIAZINE
     Dosage: 1 %, UNK
     Route: 061
     Dates: start: 20140801
  7. PAMIDRONATE [Suspect]
     Active Substance: PAMIDRONATE DISODIUM
     Dosage: UNK
     Dates: start: 20150511
  8. FLAGYL [Concomitant]
     Active Substance: METRONIDAZOLE\METRONIDAZOLE HYDROCHLORIDE
     Dosage: 500 MG, UNK
     Route: 048
     Dates: start: 20150209

REACTIONS (1)
  - Drug ineffective [Fatal]

NARRATIVE: CASE EVENT DATE: 20150515
